APPROVED DRUG PRODUCT: OXBRYTA
Active Ingredient: VOXELOTOR
Strength: 300MG
Dosage Form/Route: TABLET;ORAL
Application: N213137 | Product #002
Applicant: GLOBAL BLOOD THERAPEUTICS INC
Approved: Oct 14, 2022 | RLD: Yes | RS: No | Type: DISCN

PATENTS:
Patent 11944612 | Expires: Dec 2, 2036
Patent 11452720 | Expires: Feb 6, 2035
Patent 11020382 | Expires: Dec 2, 2036
Patent 11020382 | Expires: Dec 2, 2036
Patent 9248199 | Expires: Jan 29, 2034
Patent 9248199 | Expires: Jan 29, 2034
Patent 10806733 | Expires: Dec 28, 2032
Patent 10017491 | Expires: Dec 28, 2032
Patent 10034879 | Expires: Dec 28, 2032
Patent 10493035 | Expires: Oct 12, 2037
Patent 9018210 | Expires: Nov 25, 2033
Patent 9447071 | Expires: Feb 6, 2035
Patent 10722502 | Expires: Feb 6, 2035

EXCLUSIVITY:
Code: ODE-394 | Date: Dec 17, 2028